FAERS Safety Report 24880241 (Version 1)
Quarter: 2025Q1

REPORT INFORMATION
  Report Type: Other
  Country: BR (occurrence: BR)
  Receive Date: 20250123
  Receipt Date: 20250123
  Transmission Date: 20250408
  Serious: Yes (Other)
  Sender: BRECKENRIDGE PHARMACEUTICAL, INC.
  Company Number: BR-Breckenridge Pharmaceutical, Inc.-2169660

PATIENT
  Age: 32 Year
  Sex: Female

DRUGS (2)
  1. ZOLPIDEM [Suspect]
     Active Substance: ZOLPIDEM TARTRATE
     Indication: Insomnia
  2. TRAZODONE [Concomitant]
     Active Substance: TRAZODONE HYDROCHLORIDE

REACTIONS (9)
  - Toxicity to various agents [Unknown]
  - Dependence [Unknown]
  - Social problem [Unknown]
  - Disturbance in attention [Unknown]
  - Drug withdrawal convulsions [Unknown]
  - Drug dependence [Unknown]
  - Insomnia [Unknown]
  - Drug tolerance [Unknown]
  - Drug abuse [Unknown]
